FAERS Safety Report 8393127-3 (Version None)
Quarter: 2012Q2

REPORT INFORMATION
  Report Type: 
  Country: None (occurrence: None)
  Receive Date: 20120529
  Receipt Date: 20120425
  Transmission Date: 20120825
  Serious: No
  Sender: FDA-Public Use
  Company Number: US-ABBOTT-12P-163-0930136-00

PATIENT
  Sex: Male
  Weight: 86.26 kg

DRUGS (3)
  1. AMLODIPINE BESYLATE [Concomitant]
     Indication: HYPERTENSION
  2. LOSARTAN POTASSIUM [Concomitant]
     Indication: HYPERTENSION
  3. ANDROGEL [Suspect]
     Indication: BLOOD TESTOSTERONE DECREASED
     Dates: start: 20110901

REACTIONS (2)
  - INAPPROPRIATE SCHEDULE OF DRUG ADMINISTRATION [None]
  - BLOOD TESTOSTERONE ABNORMAL [None]
